FAERS Safety Report 7628577-3 (Version None)
Quarter: 2011Q3

REPORT INFORMATION
  Report Type: 
  Country: None (occurrence: None)
  Receive Date: 20110721
  Receipt Date: 20110721
  Transmission Date: 20111222
  Serious: Yes (Life-Threatening, Hospitalization)
  Sender: FDA-Public Use
  Company Number: None

PATIENT
  Sex: Female
  Weight: 78.4723 kg

DRUGS (8)
  1. ANASTROZOLE [Concomitant]
  2. NADOLOL [Concomitant]
  3. DIGOXIN [Concomitant]
  4. PRADAXA [Suspect]
     Indication: ATRIAL FIBRILLATION
     Dosage: 150 MG 2X/DAY BID PO (BY MOUTH)
     Route: 048
     Dates: start: 20110514, end: 20110610
  5. SYNTHROID [Concomitant]
  6. VITAMIN D [Concomitant]
  7. BONIVA [Concomitant]
  8. SIMVASTATIN [Concomitant]

REACTIONS (2)
  - GASTROINTESTINAL HAEMORRHAGE [None]
  - DIVERTICULUM [None]
